FAERS Safety Report 10300467 (Version 1)
Quarter: 2014Q3

REPORT INFORMATION
  Report Type: Report from Study
  Country: US (occurrence: US)
  Receive Date: 20140713
  Receipt Date: 20140713
  Transmission Date: 20150326
  Serious: Yes (Hospitalization, Other)
  Sender: FDA-Public Use
  Company Number: PHHY2014US085574

PATIENT
  Age: 44 Year
  Sex: Female
  Weight: 82 kg

DRUGS (4)
  1. MYCOPHENOLATE MOFETIL. [Suspect]
     Active Substance: MYCOPHENOLATE MOFETIL
     Indication: RENAL TRANSPLANT
     Dosage: 500 MG, QID
     Route: 048
     Dates: start: 20130910
  2. BASILIXIMAB [Suspect]
     Active Substance: BASILIXIMAB
     Indication: RENAL TRANSPLANT
     Dosage: 20 MG, UNK
     Route: 042
     Dates: start: 20130909, end: 20130913
  3. KEFLEX [Concomitant]
     Active Substance: CEPHALEXIN
     Dosage: UNK UKN, UNK
     Dates: start: 20130910
  4. CEPHALEXIN. [Concomitant]
     Active Substance: CEPHALEXIN
     Indication: ANTIBIOTIC PROPHYLAXIS
     Dosage: UNK UKN, UNK
     Dates: start: 20140226, end: 20140321

REACTIONS (5)
  - Complications of transplanted kidney [Unknown]
  - Diarrhoea [Unknown]
  - Urinary tract infection enterococcal [Recovering/Resolving]
  - Myalgia [Unknown]
  - Pyrexia [Unknown]

NARRATIVE: CASE EVENT DATE: 20140213
